FAERS Safety Report 13784304 (Version 1)
Quarter: 2017Q3

REPORT INFORMATION
  Report Type: Spontaneous
  Country: PH (occurrence: PH)
  Receive Date: 20170724
  Receipt Date: 20170724
  Transmission Date: 20171127
  Serious: Yes (Death, Hospitalization)
  Sender: FDA-Public Use
  Company Number: PHHY2017PH106048

PATIENT
  Age: 57 Year
  Sex: Male

DRUGS (2)
  1. METHOTREXATE (METHOTREXATE SODIUM) [Suspect]
     Active Substance: METHOTREXATE SODIUM
     Indication: PSORIASIS
     Dosage: 2.5 MG, TID
     Route: 065
  2. AMLODIPINE [Concomitant]
     Active Substance: AMLODIPINE BESYLATE
     Indication: HYPERTENSION
     Dosage: 10 MG, QD
     Route: 065

REACTIONS (17)
  - Neurodermatitis [Fatal]
  - Toxicity to various agents [Fatal]
  - Abdominal pain upper [Unknown]
  - Asthenia [Unknown]
  - Melaena [Unknown]
  - Erosive oesophagitis [Unknown]
  - Dyspnoea [Unknown]
  - Pneumonia [Fatal]
  - Gastric ulcer [Unknown]
  - Nausea [Unknown]
  - Decreased appetite [Unknown]
  - Faeces discoloured [Unknown]
  - Pancytopenia [Unknown]
  - Duodenal ulcer [Unknown]
  - Pyrexia [Unknown]
  - Acute respiratory failure [Fatal]
  - Skin lesion [Unknown]
